FAERS Safety Report 12531421 (Version 1)
Quarter: 2016Q3

REPORT INFORMATION
  Report Type: Spontaneous
  Country: US (occurrence: US)
  Receive Date: 20160706
  Receipt Date: 20160706
  Transmission Date: 20161109
  Serious: No
  Sender: FDA-Public Use
  Company Number: US-MALLINCKRODT-T201504345

PATIENT
  Age: 58 Year
  Sex: Female
  Weight: 140 kg

DRUGS (2)
  1. OXYCODONE [Suspect]
     Active Substance: OXYCODONE
     Indication: ARTHRITIS
     Dosage: 30 MG, 2/3 TAB PRN
     Route: 048
     Dates: start: 20150910, end: 20150910
  2. OXYCODONE [Suspect]
     Active Substance: OXYCODONE
     Indication: BONE DISORDER

REACTIONS (4)
  - Nausea [Recovered/Resolved]
  - Product taste abnormal [Unknown]
  - Gastrooesophageal reflux disease [Recovered/Resolved]
  - Wrong technique in product usage process [Unknown]

NARRATIVE: CASE EVENT DATE: 20150910
